FAERS Safety Report 10004103 (Version 2)
Quarter: 2014Q1

REPORT INFORMATION
  Report Type: Spontaneous
  Country: GB (occurrence: GB)
  Receive Date: 20140312
  Receipt Date: 20140326
  Transmission Date: 20141002
  Serious: Yes (Other)
  Sender: FDA-Public Use
  Company Number: PHFR2014GB002074

PATIENT
  Sex: Male

DRUGS (3)
  1. CLOZARIL [Suspect]
     Indication: SCHIZOPHRENIA
     Dosage: UNK
     Route: 048
     Dates: start: 20130731
  2. DENZAPINE [Suspect]
     Dosage: 275 MG, DAILY (100 MG AM AND 175 MG PM)
     Route: 048
     Dates: start: 201309, end: 201403
  3. ARIPIPRAZOLE [Concomitant]
     Indication: SCHIZOPHRENIA
     Dosage: 15 MG, DAILY
     Route: 048
     Dates: start: 201403

REACTIONS (3)
  - Electrocardiogram abnormal [Unknown]
  - Left ventricular dysfunction [Unknown]
  - Sinus tachycardia [Unknown]
